FAERS Safety Report 7226901-7 (Version None)
Quarter: 2011Q1

REPORT INFORMATION
  Report Type: 
  Country: None (occurrence: None)
  Receive Date: 20110114
  Receipt Date: 20110110
  Transmission Date: 20110831
  Serious: Yes (Hospitalization, Other)
  Sender: FDA-Public Use
  Company Number: US-B.I. PHARMACEUTICALS,INC./RIDGEFIELD-2011-BP-00714BP

PATIENT
  Sex: Female

DRUGS (5)
  1. MICARDIS [Concomitant]
     Indication: HYPERTENSION
     Dates: start: 20100501
  2. PREMPRO [Concomitant]
     Indication: OSTEOPOROSIS
  3. COMBIVENT [Suspect]
     Dosage: 8 PUF
     Route: 055
     Dates: start: 20101201, end: 20110110
  4. EVISTA [Concomitant]
     Indication: OSTEOPOROSIS
  5. COMBIVENT [Suspect]
     Indication: CHRONIC OBSTRUCTIVE PULMONARY DISEASE
     Route: 055
     Dates: start: 20050101, end: 20101201

REACTIONS (7)
  - IRRITABLE BOWEL SYNDROME [None]
  - MICTURITION URGENCY [None]
  - COLON CANCER [None]
  - DYSURIA [None]
  - LUNG INFECTION [None]
  - CHRONIC OBSTRUCTIVE PULMONARY DISEASE [None]
  - CONSTIPATION [None]
